FAERS Safety Report 17200431 (Version 1)
Quarter: 2019Q4

REPORT INFORMATION
  Report Type: Other
  Country: CA (occurrence: CA)
  Receive Date: 20191226
  Receipt Date: 20191226
  Transmission Date: 20200122
  Serious: Yes (Other)
  Sender: FDA-Public Use
  Company Number: CA-COLGATE PALMOLIVE COMPANY-20191203109

PATIENT

DRUGS (32)
  1. CHLORHEXIDINE UNSPECIFIED [Suspect]
     Active Substance: CHLORHEXIDINE
  2. CIMZIA [Suspect]
     Active Substance: CERTOLIZUMAB PEGOL
     Dosage: 400 MG
     Route: 058
  3. COLECALCIFEROL [Concomitant]
     Active Substance: CHOLECALCIFEROL
  4. ACTEMRA [Suspect]
     Active Substance: TOCILIZUMAB
  5. METHOTREXATE. [Suspect]
     Active Substance: METHOTREXATE
  6. SULFAMETHOXAZOLE AND TRIMETHOPRIM [Concomitant]
     Active Substance: SULFAMETHOXAZOLE\TRIMETHOPRIM
  7. VITAMIN C [Concomitant]
     Active Substance: ASCORBIC ACID
  8. ENBREL [Suspect]
     Active Substance: ETANERCEPT
     Indication: RHEUMATOID ARTHRITIS
     Route: 058
  9. ALFACALCIDOL [Concomitant]
     Active Substance: ALFACALCIDOL
  10. SULFAMETHOXAZOLE AND TRIMETHOPRIM [Suspect]
     Active Substance: SULFAMETHOXAZOLE\TRIMETHOPRIM
  11. ZOPICLONE [Concomitant]
     Active Substance: ZOPICLONE
  12. PLAQUENIL SULFATE [Concomitant]
     Active Substance: HYDROXYCHLOROQUINE SULFATE
  13. FISH OIL [Concomitant]
     Active Substance: FISH OIL
  14. LEFLUNOMIDE. [Suspect]
     Active Substance: LEFLUNOMIDE
  15. ACETAMINOPHEN. [Suspect]
     Active Substance: ACETAMINOPHEN
  16. ARAVA [Suspect]
     Active Substance: LEFLUNOMIDE
  17. ORENCIA [Suspect]
     Active Substance: ABATACEPT
  18. PERIOGARD ALCOHOL FREE [Suspect]
     Active Substance: CHLORHEXIDINE GLUCONATE
     Route: 002
  19. CIMZIA [Suspect]
     Active Substance: CERTOLIZUMAB PEGOL
     Indication: RHEUMATOID ARTHRITIS
     Dosage: 400 MG, EVERY 2 WEEKS
     Route: 058
  20. CIMZIA [Suspect]
     Active Substance: CERTOLIZUMAB PEGOL
     Dosage: 200 MG, EVERY 2 WEEKS
     Route: 058
  21. SIMPONI [Suspect]
     Active Substance: GOLIMUMAB
     Route: 058
  22. OXYCODONE TEREPHTHALATE [Suspect]
     Active Substance: OXYCODONE TEREPHTHALATE
  23. PANTOPRAZOLE [Concomitant]
     Active Substance: PANTOPRAZOLE
  24. HYDROXYCHLOROQUINE [Concomitant]
     Active Substance: HYDROXYCHLOROQUINE
  25. DESOGESTREL AND ETHINYL ESTRADIOL [Concomitant]
     Active Substance: DESOGESTREL\ETHINYL ESTRADIOL
  26. COENZYME Q10 [Concomitant]
     Active Substance: UBIDECARENONE
  27. CIMZIA [Suspect]
     Active Substance: CERTOLIZUMAB PEGOL
     Dosage: UNK
     Route: 058
  28. VITAMIN D NOS [Concomitant]
     Active Substance: VITAMIN D NOS
  29. IBUPROFEN. [Concomitant]
     Active Substance: IBUPROFEN
  30. PANTOLOC [PANTOPRAZOLE] [Concomitant]
     Active Substance: PANTOPRAZOLE SODIUM
  31. REACTINE [CETIRIZINE HYDROCHLORIDE] [Concomitant]
     Active Substance: CETIRIZINE HYDROCHLORIDE
  32. PREDNISONE. [Concomitant]
     Active Substance: PREDNISONE

REACTIONS (21)
  - Night sweats [Unknown]
  - Muscle spasticity [Unknown]
  - Urticaria [Unknown]
  - Headache [Unknown]
  - Contraindicated product administered [Unknown]
  - Vomiting [Unknown]
  - Back pain [Unknown]
  - Pruritus [Unknown]
  - Joint swelling [Unknown]
  - Lower respiratory tract infection [Unknown]
  - Insomnia [Unknown]
  - Sinusitis [Unknown]
  - Abdominal pain upper [Unknown]
  - Body temperature increased [Unknown]
  - Respiratory disorder [Unknown]
  - Asthenia [Unknown]
  - Ear pain [Unknown]
  - Rash [Unknown]
  - Peripheral swelling [Unknown]
  - Diarrhoea [Unknown]
  - Pain [Unknown]
